FAERS Safety Report 18866294 (Version 1)
Quarter: 2021Q1

REPORT INFORMATION
  Report Type: Spontaneous
  Country: US (occurrence: US)
  Receive Date: 20210208
  Receipt Date: 20210208
  Transmission Date: 20210420
  Serious: No
  Sender: FDA-Public Use
  Company Number: None

PATIENT
  Age: 56 Year
  Sex: Female

DRUGS (1)
  1. AMBRISENTAN 10MG TABLET [Suspect]
     Active Substance: AMBRISENTAN
     Route: 048
     Dates: start: 20200221

REACTIONS (1)
  - Sinus disorder [None]
